FAERS Safety Report 8772742 (Version 5)
Quarter: 2012Q4

REPORT INFORMATION
  Report Type: Report from Study
  Country: CA (occurrence: CA)
  Receive Date: 20120906
  Receipt Date: 20121206
  Transmission Date: 20130627
  Serious: Yes (Other)
  Sender: FDA-Public Use
  Company Number: CA-ABBOTT-12P-028-0976524-00

PATIENT
  Age: 47 Year
  Sex: Female
  Weight: 68.1 kg

DRUGS (11)
  1. HUMIRA [Suspect]
     Indication: PRODUCT USED FOR UNKNOWN INDICATION
     Route: 058
     Dates: start: 20120129
  2. ANTI-NAUSEA [Suspect]
  3. CIPRALEX [Concomitant]
     Indication: ANTIDEPRESSANT THERAPY
     Route: 048
     Dates: start: 2010
  4. COVERSYL [Concomitant]
     Indication: HYPERTENSION
     Route: 048
     Dates: start: 201105
  5. HUMULIN [Concomitant]
     Indication: TYPE 2 DIABETES MELLITUS
     Route: 048
     Dates: start: 2011
  6. VENTOLIN [Concomitant]
     Indication: ASTHMA
     Dosage: 1 to 2 puff as needed
     Route: 055
     Dates: start: 1980
  7. PULMICORT [Concomitant]
     Indication: ASTHMA
     Route: 055
     Dates: start: 2002
  8. SEASONALE [Concomitant]
     Indication: CONTRACEPTION
     Route: 048
     Dates: start: 2008
  9. AMITRIPTYLINE [Concomitant]
     Indication: SLEEP DISORDER THERAPY
     Dates: start: 201207
  10. AMITRIPTYLINE [Concomitant]
     Indication: ANTIDEPRESSANT THERAPY
  11. IMURAN [Concomitant]
     Indication: CROHN^S DISEASE
     Route: 048
     Dates: start: 2011

REACTIONS (3)
  - Rectal discharge [Not Recovered/Not Resolved]
  - Diarrhoea haemorrhagic [Not Recovered/Not Resolved]
  - Colectomy [Unknown]
